FAERS Safety Report 9689112 (Version 1)
Quarter: 2013Q4

REPORT INFORMATION
  Report Type: Spontaneous
  Country: DE (occurrence: DE)
  Receive Date: 20131114
  Receipt Date: 20131114
  Transmission Date: 20140711
  Serious: Yes (Life-Threatening, Hospitalization)
  Sender: FDA-Public Use
  Company Number: DE-ASTRAZENECA-2013SE82828

PATIENT
  Age: 89 Year
  Sex: Male

DRUGS (3)
  1. BICALUTAMIDE [Suspect]
     Indication: PROSTATE CANCER
     Route: 048
     Dates: start: 20130916, end: 20130920
  2. TRENANTONE [Concomitant]
     Route: 030
  3. GINKGO [Concomitant]
     Indication: PERFORMANCE STATUS DECREASED
     Route: 048

REACTIONS (1)
  - Atrioventricular block complete [Not Recovered/Not Resolved]
